FAERS Safety Report 16864157 (Version 2)
Quarter: 2019Q4

REPORT INFORMATION
  Report Type: Spontaneous
  Country: US (occurrence: US)
  Receive Date: 20190927
  Receipt Date: 20191023
  Transmission Date: 20200122
  Serious: Yes (Other)
  Sender: FDA-Public Use
  Company Number: US-009507513-1909USA013269

PATIENT
  Sex: Female

DRUGS (2)
  1. FOLLISTIM [Suspect]
     Active Substance: FOLLITROPIN
     Indication: INFERTILITY FEMALE
     Dosage: UNK
     Route: 058
     Dates: start: 20190828
  2. CLOMIPHENE CITRATE. [Suspect]
     Active Substance: CLOMIPHENE CITRATE
     Indication: INFERTILITY FEMALE
     Dosage: 100 MILLIGRAM, QD
     Route: 048
     Dates: start: 20190828

REACTIONS (2)
  - Abortion spontaneous [Unknown]
  - Acne [Unknown]

NARRATIVE: CASE EVENT DATE: 2019
